FAERS Safety Report 19022307 (Version 1)
Quarter: 2021Q1

REPORT INFORMATION
  Report Type: Spontaneous
  Country: CN (occurrence: CN)
  Receive Date: 20210317
  Receipt Date: 20210317
  Transmission Date: 20210420
  Serious: Yes (Other)
  Sender: FDA-Public Use
  Company Number: CN-PFIZER INC-2021269525

PATIENT
  Age: 12 Year
  Sex: Female
  Weight: 59 kg

DRUGS (1)
  1. METHOTREXATE. [Suspect]
     Active Substance: METHOTREXATE
     Indication: NEOPLASM
     Dosage: 7650 MG, 1X/DAY
     Route: 041
     Dates: start: 20210304, end: 20210304

REACTIONS (2)
  - Renal impairment [Recovering/Resolving]
  - Gastrointestinal disorder [Recovering/Resolving]

NARRATIVE: CASE EVENT DATE: 20210304
